FAERS Safety Report 25202490 (Version 1)
Quarter: 2025Q2

REPORT INFORMATION
  Report Type: Other
  Country: FR (occurrence: FR)
  Receive Date: 20250416
  Receipt Date: 20250416
  Transmission Date: 20250716
  Serious: Yes (Other)
  Sender: DENTSPLY
  Company Number: FR-DENTSPLY-2025SCDP000112

PATIENT
  Age: 3 Month
  Sex: Male
  Weight: 7.8 kg

DRUGS (2)
  1. LIDOCAINE\PRILOCAINE [Suspect]
     Active Substance: LIDOCAINE\PRILOCAINE
     Indication: Anaesthesia
     Route: 003
     Dates: start: 20250321, end: 20250321
  2. DESONIDE [Concomitant]
     Active Substance: DESONIDE
     Indication: Product used for unknown indication

REACTIONS (2)
  - Purpura [None]
  - Dermatitis bullous [None]

NARRATIVE: CASE EVENT DATE: 20250321
